FAERS Safety Report 4281015-3 (Version None)
Quarter: 2004Q1

REPORT INFORMATION
  Report Type: 
  Country: None (occurrence: None)
  Receive Date: 20040128
  Receipt Date: 20040128
  Transmission Date: 20041129
  Serious: Yes (Hospitalization)
  Sender: FDA-Public Use
  Company Number: None

PATIENT
  Sex: Female
  Weight: 68.0396 kg

DRUGS (7)
  1. CLINDAMYCIN HCL [Suspect]
     Indication: DENTAL DISORDER PROPHYLAXIS
     Dosage: 600 MG PO X 1
     Route: 048
     Dates: start: 20030831
  2. LISINOPRIL [Concomitant]
  3. METOPROLOL [Concomitant]
  4. AMILORIDE HCL AND HYDROCHLOROTHIAZIDE [Concomitant]
  5. CLONAZEPAM [Concomitant]
  6. IMIPRAMINE [Concomitant]
  7. ACIPHEX [Concomitant]

REACTIONS (1)
  - COLITIS [None]
